FAERS Safety Report 23779005 (Version 1)
Quarter: 2024Q2

REPORT INFORMATION
  Report Type: Other
  Country: US (occurrence: None)
  Receive Date: 20240424
  Receipt Date: 20240424
  Transmission Date: 20240715
  Serious: Yes (Other)
  Sender: FDA-Public Use
  Company Number: US-ROCHE-3551419

PATIENT
  Age: 59 Year
  Sex: Male
  Weight: 89.438 kg

DRUGS (11)
  1. RITUXAN [Suspect]
     Active Substance: RITUXIMAB
     Indication: Diffuse large B-cell lymphoma
     Route: 041
  2. ALOXI [Concomitant]
     Active Substance: PALONOSETRON HYDROCHLORIDE
     Dosage: 1 TIME ON DAY 1
     Route: 042
  3. EMEND [Concomitant]
     Active Substance: APREPITANT
     Dosage: 1 TIME ON DAY 1
     Route: 042
  4. DECADRON [Concomitant]
     Active Substance: DEXAMETHASONE
     Dosage: 1 TIME ON DAY 1
     Route: 042
  5. ROLVEDON [Concomitant]
     Active Substance: EFLAPEGRASTIM-XNST
  6. FULPHILA (UNITED STATES) [Concomitant]
  7. PREDNISONE [Concomitant]
     Active Substance: PREDNISONE
  8. CYTOXAN [Concomitant]
     Active Substance: CYCLOPHOSPHAMIDE
  9. DOXORUBICIN [Concomitant]
     Active Substance: DOXORUBICIN
  10. VINCRISTINE [Concomitant]
     Active Substance: VINCRISTINE
  11. UDENYCA [Concomitant]
     Active Substance: PEGFILGRASTIM-CBQV

REACTIONS (3)
  - Agranulocytosis [Unknown]
  - Nausea [Unknown]
  - Vomiting [Unknown]
